FAERS Safety Report 18920476 (Version 1)
Quarter: 2021Q1

REPORT INFORMATION
  Report Type: Spontaneous
  Country: US (occurrence: US)
  Receive Date: 20210222
  Receipt Date: 20210222
  Transmission Date: 20210420
  Serious: No
  Sender: FDA-Public Use
  Company Number: US-AXELLIA-002996

PATIENT

DRUGS (1)
  1. POLYMYXIN B. [Suspect]
     Active Substance: POLYMYXIN B
     Indication: POSTOPERATIVE CARE
     Dosage: STRENGTH: USP 5,00,000 UNITS/VIAL
     Dates: start: 20200211

REACTIONS (2)
  - Off label use [Unknown]
  - Medication error [Unknown]
